FAERS Safety Report 9319709 (Version 1)
Quarter: 2013Q2

REPORT INFORMATION
  Report Type: Spontaneous
  Country: US (occurrence: None)
  Receive Date: 20130529
  Receipt Date: 20130529
  Transmission Date: 20140414
  Serious: Yes (Life-Threatening)
  Sender: FDA-Public Use
  Company Number: None

PATIENT
  Age: 41 Year
  Sex: Female
  Weight: 72.58 kg

DRUGS (1)
  1. PROGESTERONE [Suspect]
     Indication: INFERTILITY
     Route: 058
     Dates: start: 20130307, end: 20130407

REACTIONS (5)
  - Urticaria [None]
  - Erythema [None]
  - Pruritus [None]
  - Lip swelling [None]
  - Swollen tongue [None]
